FAERS Safety Report 19153174 (Version 1)
Quarter: 2021Q2

REPORT INFORMATION
  Report Type: Spontaneous
  Country: CH (occurrence: CH)
  Receive Date: 20210419
  Receipt Date: 20210419
  Transmission Date: 20210717
  Serious: Yes (Life-Threatening, Hospitalization, Other)
  Sender: FDA-Public Use
  Company Number: CH-ACCORD-222894

PATIENT
  Age: 14 Year
  Sex: Female
  Weight: 68 kg

DRUGS (1)
  1. HYDROXYCHLOROQUINE [Suspect]
     Active Substance: HYDROXYCHLOROQUINE

REACTIONS (14)
  - Cardio-respiratory arrest [Recovered/Resolved]
  - Trismus [Recovering/Resolving]
  - Metabolic acidosis [Recovering/Resolving]
  - Ventricular tachycardia [Recovered/Resolved]
  - Cardiotoxicity [Recovering/Resolving]
  - Intentional overdose [Unknown]
  - Hypokalaemia [Recovering/Resolving]
  - Somnolence [Recovering/Resolving]
  - Dystonia [Recovering/Resolving]
  - Memory impairment [Recovering/Resolving]
  - Toxicity to various agents [Unknown]
  - Left ventricular dysfunction [Recovering/Resolving]
  - Encephalopathy [Recovering/Resolving]
  - Acid-base balance disorder mixed [Recovering/Resolving]
